FAERS Safety Report 9187434 (Version 6)
Quarter: 2013Q2

REPORT INFORMATION
  Report Type: Spontaneous
  Country: US (occurrence: US)
  Receive Date: 20130325
  Receipt Date: 20130528
  Transmission Date: 20140414
  Serious: Yes (Hospitalization, Other)
  Sender: FDA-Public Use
  Company Number: US-JNJFOC-20130311186

PATIENT
  Age: 59 Year
  Sex: Female
  Weight: 73.03 kg

DRUGS (11)
  1. XARELTO [Suspect]
     Indication: THROMBOSIS PROPHYLAXIS
     Route: 048
  2. XARELTO [Suspect]
     Indication: THROMBOSIS PROPHYLAXIS
     Route: 048
  3. XARELTO [Suspect]
     Indication: KNEE ARTHROPLASTY
     Route: 048
  4. TRANEXAMIC ACID [Interacting]
     Indication: PRODUCT USED FOR UNKNOWN INDICATION
     Route: 065
  5. DIAZEPAM [Concomitant]
     Indication: INSOMNIA
     Dosage: AT BED TIME, TAKING FROM YEARS
     Route: 065
  6. LOVASTATIN [Concomitant]
     Indication: HYPERLIPIDAEMIA
     Dosage: AT NIGNT, TAKING FROM YEARS
     Route: 065
  7. VITAMIN D3 [Concomitant]
     Indication: VITAMIN D DEFICIENCY
     Dosage: TAKING FROM YEARS
     Route: 065
  8. PAROXETINE [Concomitant]
     Indication: DEPRESSION
     Route: 065
  9. ASPIRIN [Concomitant]
     Indication: CARDIAC DISORDER
     Dosage: TAKING FROM YEARS
     Route: 065
  10. DILTIAZEM [Concomitant]
     Indication: SUPRAVENTRICULAR TACHYCARDIA
     Dosage: TAKING FROM YEARS
     Route: 065
  11. MECLIZINE [Concomitant]
     Indication: VERTIGO
     Dosage: THRICE A DAY AS NEEDED AT PM
     Route: 065

REACTIONS (3)
  - Deep vein thrombosis [Unknown]
  - Pulmonary embolism [Recovered/Resolved]
  - Drug interaction [Unknown]
